FAERS Safety Report 16150060 (Version 2)
Quarter: 2019Q3

REPORT INFORMATION
  Report Type: Spontaneous
  Country: NO (occurrence: NO)
  Receive Date: 20190402
  Receipt Date: 20190928
  Transmission Date: 20191004
  Serious: Yes (Disabling)
  Sender: FDA-Public Use
  Company Number: PHHY2019NO073291

PATIENT
  Sex: Female
  Weight: 57 kg

DRUGS (1)
  1. ACLASTA [Suspect]
     Active Substance: ZOLEDRONIC ACID
     Indication: OSTEOPOROSIS
     Dosage: UNK
     Route: 041
     Dates: start: 20170906

REACTIONS (18)
  - Fatigue [Recovering/Resolving]
  - Headache [Recovering/Resolving]
  - Paraesthesia oral [Unknown]
  - Head discomfort [Unknown]
  - Memory impairment [Recovering/Resolving]
  - Infusion related reaction [Recovering/Resolving]
  - Dry mouth [Recovering/Resolving]
  - Disturbance in attention [Recovering/Resolving]
  - Influenza like illness [Recovering/Resolving]
  - Pruritus [Recovering/Resolving]
  - Listless [Recovering/Resolving]
  - Blister [Recovering/Resolving]
  - Asthenia [Recovering/Resolving]
  - Dizziness [Recovering/Resolving]
  - Oral mucosal blistering [Recovering/Resolving]
  - Paraesthesia [Recovering/Resolving]
  - Dyspnoea exertional [Unknown]
  - Myalgia [Recovering/Resolving]

NARRATIVE: CASE EVENT DATE: 2017
